FAERS Safety Report 22097202 (Version 1)
Quarter: 2023Q1

REPORT INFORMATION
  Report Type: Report from Study
  Country: US (occurrence: US)
  Receive Date: 20230315
  Receipt Date: 20230315
  Transmission Date: 20230418
  Serious: Yes (Other)
  Sender: FDA-Public Use
  Company Number: US-ABBVIE-4339826

PATIENT
  Age: 69 Year
  Sex: Male

DRUGS (1)
  1. RINVOQ [Suspect]
     Active Substance: UPADACITINIB
     Indication: Colitis ulcerative
     Route: 048
     Dates: start: 20230213, end: 20230305

REACTIONS (4)
  - Surgery [Recovering/Resolving]
  - Drug ineffective [Unknown]
  - Colitis ulcerative [Unknown]
  - Illness [Unknown]

NARRATIVE: CASE EVENT DATE: 20230305
